FAERS Safety Report 9396099 (Version 1)
Quarter: 2013Q3

REPORT INFORMATION
  Report Type: Spontaneous
  Country: DE (occurrence: None)
  Receive Date: 20130708
  Receipt Date: 20130708
  Transmission Date: 20140515
  Serious: Yes (Hospitalization, Other)
  Sender: FDA-Public Use
  Company Number: DE-20130111

PATIENT
  Age: 52 Year
  Sex: Female

DRUGS (1)
  1. DOTAREM [Suspect]
     Indication: NUCLEAR MAGNETIC RESONANCE IMAGING
     Dosage: 15 MLL  (15 ML, 1 IN 1 D), INTRAVENOUS (NOT OTHERWISE SPECIFIED)
     Route: 042
     Dates: start: 20130624, end: 20130624

REACTIONS (4)
  - Loss of consciousness [None]
  - Tachycardia [None]
  - Enuresis [None]
  - Dizziness [None]
